FAERS Safety Report 17549339 (Version 2)
Quarter: 2020Q2

REPORT INFORMATION
  Report Type: Spontaneous
  Country: US (occurrence: US)
  Receive Date: 20200317
  Receipt Date: 20200423
  Transmission Date: 20200713
  Serious: Yes (Other)
  Sender: FDA-Public Use
  Company Number: US-BAYER-2020-045792

PATIENT
  Age: 21 Year
  Sex: Female

DRUGS (1)
  1. MIRENA [Suspect]
     Active Substance: LEVONORGESTREL
     Indication: CONTRACEPTION
     Dosage: 20?G PER DAY CONT
     Route: 015
     Dates: start: 20191024, end: 20191205

REACTIONS (2)
  - Device dislocation [Recovered/Resolved]
  - Device malfunction [None]

NARRATIVE: CASE EVENT DATE: 20191205
